FAERS Safety Report 7235324-6 (Version None)
Quarter: 2011Q1

REPORT INFORMATION
  Report Type: 
  Country: None (occurrence: None)
  Receive Date: 20110120
  Receipt Date: 20110113
  Transmission Date: 20110831
  Serious: Yes (Other)
  Sender: FDA-Public Use
  Company Number: FR-JNJFOC-20101205669

PATIENT
  Age: 39 Year
  Sex: Male
  Weight: 83 kg

DRUGS (3)
  1. REMICADE [Suspect]
     Indication: SPONDYLOARTHROPATHY
     Route: 042
  2. BI-PROFENID [Concomitant]
  3. DAFALGAN [Concomitant]

REACTIONS (1)
  - MALIGNANT MELANOMA [None]
